FAERS Safety Report 12165662 (Version 1)
Quarter: 2016Q1

REPORT INFORMATION
  Report Type: Other
  Country: DE (occurrence: DE)
  Receive Date: 20160309
  Receipt Date: 20160309
  Transmission Date: 20160526
  Serious: Yes (Other)
  Sender: FDA-Public Use
  Company Number: DE-MYLANLABS-2016M1009214

PATIENT

DRUGS (3)
  1. SCHMERZTABLETTEN [Concomitant]
     Dosage: UNK
  2. VALSARTAN DURA 80 MG FILMTABLETTEN [Suspect]
     Active Substance: VALSARTAN
     Dosage: UNK
     Route: 048
     Dates: start: 201211
  3. GRANUFINK [Concomitant]
     Dosage: UNK

REACTIONS (12)
  - Constipation [Unknown]
  - Abdominal pain [Unknown]
  - Influenza like illness [Unknown]
  - Arthralgia [Unknown]
  - Respiratory distress [Unknown]
  - Myalgia [Unknown]
  - Pruritus [Unknown]
  - Dizziness [Unknown]
  - Asthenia [Unknown]
  - Fatigue [Unknown]
  - Headache [Unknown]
  - Pollakiuria [Unknown]

NARRATIVE: CASE EVENT DATE: 2013
